FAERS Safety Report 4966037-9 (Version None)
Quarter: 2006Q2

REPORT INFORMATION
  Report Type: 
  Country: None (occurrence: None)
  Receive Date: 20060407
  Receipt Date: 20060330
  Transmission Date: 20061013
  Serious: Yes (Hospitalization)
  Sender: FDA-Public Use
  Company Number: FR-GLAXOSMITHKLINE-B0419145A

PATIENT
  Age: 51 Year
  Sex: Male
  Weight: 67 kg

DRUGS (6)
  1. AUGMENTIN '125' [Suspect]
     Route: 042
     Dates: start: 20051017, end: 20051107
  2. OFLOCET [Suspect]
     Route: 042
     Dates: start: 20051017, end: 20051107
  3. LANTUS [Concomitant]
     Route: 058
  4. LOZOL [Concomitant]
     Dosage: 5MG UNKNOWN
     Route: 048
  5. ZANIDIP [Concomitant]
     Dosage: 20MG UNKNOWN
     Route: 048
  6. HUMALOG [Concomitant]
     Route: 058

REACTIONS (5)
  - PRURITUS [None]
  - PURPURA [None]
  - SCRATCH [None]
  - SKIN NECROSIS [None]
  - VASCULAR PURPURA [None]
